FAERS Safety Report 8462770-5 (Version None)
Quarter: 2012Q2

REPORT INFORMATION
  Report Type: 
  Country: None (occurrence: None)
  Receive Date: 20120619
  Receipt Date: 20120619
  Transmission Date: 20120825
  Serious: No
  Sender: FDA-Public Use
  Company Number: None

PATIENT
  Age: 65 Year
  Sex: Male

DRUGS (1)
  1. SUTENT [Suspect]
     Dosage: 37.5MG DAILY 2WKSON2OFF PO
     Route: 048
     Dates: start: 20120125, end: 20120509

REACTIONS (3)
  - AGEUSIA [None]
  - WEIGHT DECREASED [None]
  - DECREASED APPETITE [None]
